FAERS Safety Report 11398583 (Version 1)
Quarter: 2015Q3

REPORT INFORMATION
  Report Type: Spontaneous
  Country: GB (occurrence: GB)
  Receive Date: 20150820
  Receipt Date: 20150820
  Transmission Date: 20151125
  Serious: Yes (Other)
  Sender: FDA-Public Use
  Company Number: GB-BRISTOL-MYERS SQUIBB COMPANY-BMS-2015-054678

PATIENT

DRUGS (1)
  1. ELIQUIS [Suspect]
     Active Substance: APIXABAN
     Indication: CEREBROVASCULAR ACCIDENT PROPHYLAXIS
     Dosage: 5 MG, BID
     Route: 065

REACTIONS (8)
  - Spinal column stenosis [Unknown]
  - Arthritis [Unknown]
  - Insomnia [Unknown]
  - Pain [Unknown]
  - Blood urine present [Unknown]
  - Myasthenia gravis [Unknown]
  - Back pain [Unknown]
  - Abdominal pain upper [Unknown]
